FAERS Safety Report 9039789 (Version 2)
Quarter: 2013Q2

REPORT INFORMATION
  Report Type: Spontaneous
  Country: US (occurrence: US)
  Receive Date: 20130130
  Receipt Date: 20130423
  Transmission Date: 20140414
  Serious: No
  Sender: FDA-Public Use
  Company Number: US-BIOGENIDEC-2013BI006620

PATIENT
  Age: 65 Year
  Sex: Male

DRUGS (1)
  1. TYSABRI [Suspect]
     Indication: MULTIPLE SCLEROSIS
     Route: 042
     Dates: start: 20120925

REACTIONS (3)
  - Gait disturbance [Not Recovered/Not Resolved]
  - Mobility decreased [Recovered/Resolved with Sequelae]
  - Asthenia [Not Recovered/Not Resolved]
